FAERS Safety Report 18391860 (Version 2)
Quarter: 2020Q4

REPORT INFORMATION
  Report Type: Spontaneous
  Country: US (occurrence: US)
  Receive Date: 20201016
  Receipt Date: 20201221
  Transmission Date: 20210114
  Serious: Yes (Other)
  Sender: FDA-Public Use
  Company Number: US-TEVA-2020-US-1838821

PATIENT
  Age: 59 Year
  Sex: Male

DRUGS (29)
  1. VALSARTAN SOLCO [Suspect]
     Active Substance: VALSARTAN
     Dosage: DOSAGE: 160MG
     Route: 065
     Dates: start: 20160511, end: 20160930
  2. SIMVASTATIN. [Concomitant]
     Active Substance: SIMVASTATIN
  3. ACETAMINOPHEN/HYDROCODONE [Concomitant]
     Active Substance: ACETAMINOPHEN\HYDROCODONE
     Dosage: DOSAGE: 10MG-325MG TABLET
  4. DULERA [Concomitant]
     Active Substance: FORMOTEROL FUMARATE DIHYDRATE\MOMETASONE FUROATE
  5. VALSARTAN ACTAVIS [Suspect]
     Active Substance: VALSARTAN
     Indication: HYPERTENSION
     Dosage: DOSAGE: 160MG
     Route: 065
     Dates: start: 20160411, end: 20160511
  6. VALSARTAN/HYDROCHLOROTHIAZIDE MACLEODS [Suspect]
     Active Substance: HYDROCHLOROTHIAZIDE\VALSARTAN
     Indication: HYPERTENSION
     Dosage: DOSAGE: 160-25MG
     Route: 065
  7. SILDENAFIL. [Concomitant]
     Active Substance: SILDENAFIL
     Indication: ERECTILE DYSFUNCTION
  8. TADALAFIL. [Concomitant]
     Active Substance: TADALAFIL
     Indication: ERECTILE DYSFUNCTION
  9. SIMVASTATIN. [Concomitant]
     Active Substance: SIMVASTATIN
     Indication: BLOOD CHOLESTEROL INCREASED
     Dosage: DOSAGE: 20MG; 1 DAILY
     Dates: start: 20100129, end: 20150227
  10. ALLOPURINOL. [Concomitant]
     Active Substance: ALLOPURINOL
  11. FEXOFENADINE [Concomitant]
     Active Substance: FEXOFENADINE HYDROCHLORIDE
     Dosage: DOSAGE: 180MG
     Dates: start: 20100924, end: 20111021
  12. LOSARTAN. [Concomitant]
     Active Substance: LOSARTAN
  13. ALBUTEROL SULFATE. [Concomitant]
     Active Substance: ALBUTEROL SULFATE
  14. PROAIR HFA [Suspect]
     Active Substance: ALBUTEROL SULFATE
     Indication: ASTHMA
     Dosage: 180 MILLIGRAM DAILY; DOSAGE: 90MG; 2 PUFFS BID
     Route: 065
     Dates: start: 20100623, end: 20130123
  15. NAPROXEN. [Concomitant]
     Active Substance: NAPROXEN
  16. CYCLOBENZAPRINE HCL [Concomitant]
     Active Substance: CYCLOBENZAPRINE HYDROCHLORIDE
  17. VALSARTAN/HYDROCHLOROTHIAZIDE MYLAN [Suspect]
     Active Substance: HYDROCHLOROTHIAZIDE\VALSARTAN
     Indication: HYPERTENSION
     Dosage: DOSAGE: 160-25MG
     Route: 065
     Dates: start: 20121130, end: 20130624
  18. FLUTICASONE PROPIONATE. [Concomitant]
     Active Substance: FLUTICASONE PROPIONATE
  19. ZOCOR [Concomitant]
     Active Substance: SIMVASTATIN
     Dosage: 20 MG TABLET
  20. VALSARTAN/HYDROCHLOROTHIAZIDE PAR [Suspect]
     Active Substance: HYDROCHLOROTHIAZIDE\VALSARTAN
     Dosage: DOSAGE: 160/25MG
     Route: 065
  21. BYSTOLIC [Concomitant]
     Active Substance: NEBIVOLOL HYDROCHLORIDE
     Indication: HYPERTENSION
     Dosage: DOSAGE: 10MG; 1 DAILY
     Dates: start: 20100106, end: 20141223
  22. VALSARTAN/HYDROCHLOROTHIAZIDE MACLEODS [Suspect]
     Active Substance: HYDROCHLOROTHIAZIDE\VALSARTAN
     Dosage: DOSAGE: 160-25MG
     Route: 065
     Dates: start: 20150501, end: 20150722
  23. DIOVAN HCT [Suspect]
     Active Substance: HYDROCHLOROTHIAZIDE\VALSARTAN
     Indication: HYPERTENSION
     Dosage: DOSAGE: 160MG-25MG; 1 DAILY
     Dates: start: 20120629, end: 20121103
  24. MONTELUKAST [Concomitant]
     Active Substance: MONTELUKAST SODIUM
  25. AMLODIPINE BESYLATE/BENAZEPRIL [Concomitant]
     Indication: HYPERTENSION
     Dosage: DOSAGE: 10/40MG 1 DAILY
     Dates: start: 20100923, end: 20180703
  26. QVAR [Concomitant]
     Active Substance: BECLOMETHASONE DIPROPIONATE
  27. VALSARTAN OHM [Suspect]
     Active Substance: VALSARTAN
     Indication: HYPERTENSION
     Dosage: DOSAGE: 160MG
     Route: 065
  28. VALSARTAN SOLCO [Suspect]
     Active Substance: VALSARTAN
     Indication: HYPERTENSION
     Dosage: DOSAGE: 160MG
     Route: 065
     Dates: start: 20161230, end: 20180703
  29. VALSARTAN/HYDROCHLOROTHIAZIDE PAR [Suspect]
     Active Substance: HYDROCHLOROTHIAZIDE\VALSARTAN
     Indication: HYPERTENSION
     Dosage: DOSAGE: 160/25MG
     Route: 065
     Dates: start: 20150722, end: 20150823

REACTIONS (5)
  - Renal cyst [Unknown]
  - Erectile dysfunction [Unknown]
  - Prostate cancer [Unknown]
  - Urinary tract disorder [Unknown]
  - Hyperlipidaemia [Unknown]

NARRATIVE: CASE EVENT DATE: 20180508
